FAERS Safety Report 13834427 (Version 1)
Quarter: 2017Q3

REPORT INFORMATION
  Report Type: Spontaneous
  Country: US (occurrence: US)
  Receive Date: 20170804
  Receipt Date: 20170804
  Transmission Date: 20171127
  Serious: No
  Sender: FDA-Public Use
  Company Number: US-PRINSTON PHARMACEUTICAL INC.-2017PRN00272

PATIENT
  Sex: Female

DRUGS (14)
  1. ZAFIRLUKAST. [Suspect]
     Active Substance: ZAFIRLUKAST
     Dosage: 40 MG, 2X/DAY
     Route: 065
  2. GLUCOSAMINE [Concomitant]
     Active Substance: GLUCOSAMINE
  3. LISINOPRIL. [Suspect]
     Active Substance: LISINOPRIL
     Indication: HYPERTENSION
     Dosage: 60 MG, 1X/DAY
     Route: 048
  4. MULTIVITAMINS [Concomitant]
     Active Substance: VITAMINS
  5. ACCOLATE [Suspect]
     Active Substance: ZAFIRLUKAST
     Indication: ASTHMA
     Dosage: UNK
     Dates: start: 1994
  6. ATROVENT HFA [Concomitant]
     Active Substance: IPRATROPIUM BROMIDE
  7. MUCINEX [Concomitant]
     Active Substance: GUAIFENESIN
  8. LISINOPRIL. [Suspect]
     Active Substance: LISINOPRIL
     Indication: ASTHMA
  9. DILTIAZEM ER [Concomitant]
     Active Substance: DILTIAZEM
  10. SYNTHROID [Concomitant]
     Active Substance: LEVOTHYROXINE SODIUM
  11. VITAMIN D [Concomitant]
     Active Substance: CHOLECALCIFEROL
  12. B VITAMINS [Concomitant]
     Active Substance: CYANOCOBALAMIN\DEXPANTHENOL\NIACINAMIDE\PYRIDOXINE HYDROCHLORIDE\RIBOFLAVIN 5^-PHOSPHATE SODIUM\THIAMINE HYDROCHLORIDE\VITAMIN B COMPLEX
  13. FLOVENT [Concomitant]
     Active Substance: FLUTICASONE PROPIONATE
  14. SINGULAIR [Concomitant]
     Active Substance: MONTELUKAST SODIUM

REACTIONS (1)
  - Asthma [Unknown]
